FAERS Safety Report 10172432 (Version 4)
Quarter: 2014Q4

REPORT INFORMATION
  Report Type: Spontaneous
  Country: US (occurrence: US)
  Receive Date: 20140515
  Receipt Date: 20141028
  Transmission Date: 20150528
  Serious: Yes (Hospitalization)
  Sender: FDA-Public Use
  Company Number: US-BAYER-2014-071628

PATIENT
  Age: 25 Year
  Sex: Female
  Weight: 72.56 kg

DRUGS (6)
  1. VICODIN [Concomitant]
     Active Substance: ACETAMINOPHEN\HYDROCODONE BITARTRATE
  2. ADIPEX-P [Concomitant]
     Active Substance: PHENTERMINE HYDROCHLORIDE
     Dosage: 37.5 MG, UNK
     Dates: start: 20110427
  3. MIRENA [Suspect]
     Active Substance: LEVONORGESTREL
     Indication: CONTRACEPTION
     Dosage: 20 MCG/24HR, CONT
     Route: 015
     Dates: start: 20110519, end: 20110527
  4. XANAX [Concomitant]
     Active Substance: ALPRAZOLAM
  5. ABILIFY [Concomitant]
     Active Substance: ARIPIPRAZOLE
  6. BUTALBITAL [Concomitant]
     Active Substance: BUTALBITAL
     Indication: MIGRAINE

REACTIONS (9)
  - Injury [None]
  - Medical device discomfort [None]
  - Menorrhagia [None]
  - Uterine perforation [None]
  - Device breakage [None]
  - Depression [None]
  - Pain [None]
  - Medical device pain [None]
  - Anxiety [None]

NARRATIVE: CASE EVENT DATE: 2011
